FAERS Safety Report 5030596-0 (Version None)
Quarter: 2006Q2

REPORT INFORMATION
  Report Type: 
  Country: None (occurrence: None)
  Receive Date: 20060615
  Receipt Date: 20060602
  Transmission Date: 20061013
  Serious: Yes (Hospitalization, Other)
  Sender: FDA-Public Use
  Company Number: 2006057363

PATIENT
  Age: 58 Year
  Sex: Female
  Weight: 99.7913 kg

DRUGS (17)
  1. CELEBREX [Suspect]
     Indication: ARTHRITIS
     Dosage: 400 MG (200 MG, 2 IN 1 D)
     Dates: start: 20020101
  2. ACETYLSALICYLIC ACID SRT [Concomitant]
  3. CODEINE [Concomitant]
  4. DARVOCET [Concomitant]
  5. PERCOCET [Concomitant]
  6. ACETAMINOPHEN [Concomitant]
  7. NITRO (GLYCERYL TRINITRATE) [Concomitant]
  8. PLAVIX [Concomitant]
  9. LIPITOR [Concomitant]
  10. LEXAPRO [Concomitant]
  11. HYDROCODONE BITARTRATE + ACETAMINOPHEN [Concomitant]
  12. WELLBUTRIN [Concomitant]
  13. LORAZEPAM [Concomitant]
  14. LISINOPRIL [Concomitant]
  15. BUSPIRONE HCL [Concomitant]
  16. CELEXA [Concomitant]
  17. MULTIVITAMIN [Concomitant]

REACTIONS (4)
  - ANEURYSM [None]
  - ARTERIAL OCCLUSIVE DISEASE [None]
  - MYOCARDIAL INFARCTION [None]
  - STENT PLACEMENT [None]
